FAERS Safety Report 9013041 (Version 2)
Quarter: 2013Q1

REPORT INFORMATION
  Report Type: Spontaneous
  Country: US (occurrence: US)
  Receive Date: 20130114
  Receipt Date: 20130221
  Transmission Date: 20140127
  Serious: Yes (Other)
  Sender: FDA-Public Use
  Company Number: US-PFIZER INC-2013015103

PATIENT
  Age: 59 Year
  Sex: Male
  Weight: 88.44 kg

DRUGS (2)
  1. NEURONTIN [Suspect]
     Indication: DEPRESSION
     Dosage: 600 MG,6X/DAY
     Dates: start: 1996
  2. NEURONTIN [Suspect]
     Indication: STRESS

REACTIONS (1)
  - Hypertension [Unknown]
